FAERS Safety Report 8246384-8 (Version None)
Quarter: 2012Q1

REPORT INFORMATION
  Report Type: 
  Country: None (occurrence: None)
  Receive Date: 20120330
  Receipt Date: 20120322
  Transmission Date: 20120608
  Serious: Yes (Hospitalization)
  Sender: FDA-Public Use
  Company Number: ES-ASTELLAS-2012US003139

PATIENT
  Sex: Male
  Weight: 68 kg

DRUGS (2)
  1. ERLOTINIB HYDROCHLORIDE [Suspect]
     Indication: PANCREATIC CARCINOMA METASTATIC
     Dosage: 100 MG, UID/QD
     Route: 048
     Dates: start: 20110811, end: 20120312
  2. GEMCITABINE HYDROCHLORIDE [Suspect]
     Indication: PANCREATIC CARCINOMA METASTATIC
     Dosage: 1740 MG, EVERY 15 DAYS
     Route: 042
     Dates: start: 20110811, end: 20120312

REACTIONS (1)
  - ISCHAEMIC ULCER [None]
